FAERS Safety Report 8848381 (Version 1)
Quarter: 2012Q4

REPORT INFORMATION
  Report Type: 
  Country: MX (occurrence: MX)
  Receive Date: 20121018
  Receipt Date: 20121018
  Transmission Date: 20130627
  Serious: Yes (Other)
  Sender: FDA-Public Use
  Company Number: PHHY2012MX092501

PATIENT
  Sex: Female

DRUGS (2)
  1. EXFORGE HCT [Suspect]
     Indication: HYPERTENSION
     Dosage: 2 DF, per day
     Route: 048
  2. BUMETANIDE [Concomitant]
     Dosage: 2 DF, per day

REACTIONS (1)
  - Neoplasm malignant [Unknown]
